FAERS Safety Report 9504388 (Version 2)
Quarter: 2013Q4

REPORT INFORMATION
  Report Type: Report from Study
  Country: US (occurrence: US)
  Receive Date: 20130906
  Receipt Date: 20131001
  Transmission Date: 20140711
  Serious: Yes (Hospitalization)
  Sender: FDA-Public Use
  Company Number: US-VERTEX PHARMACEUTICALS INC-2013-009317

PATIENT
  Age: 29 Year
  Sex: Female

DRUGS (28)
  1. VX-770 [Suspect]
     Indication: CYSTIC FIBROSIS
     Dosage: 150 MG, BID
     Route: 048
     Dates: start: 20121202
  2. ALBUTEROL [Concomitant]
     Dosage: 2 PUFFS QID
     Route: 055
  3. AQUADEKS [Concomitant]
     Dosage: 1 CAPSULE BID
     Route: 048
  4. AZTREONAM [Concomitant]
     Dosage: 2000 MG, TID
     Route: 042
  5. CELEXA [Concomitant]
     Dosage: 20 MG, QD
     Route: 048
  6. COENZYME Q10 VITAFORCE [Concomitant]
     Dosage: 50 MG, QD
     Route: 048
  7. CONCERTA [Concomitant]
     Dosage: 36 MG, QD
     Route: 048
  8. CREON 24 [Concomitant]
     Dosage: 5 WITH MEALS; 2 WITH SNACKS
  9. DUONEB [Concomitant]
     Dosage: 3 MG, BID
     Route: 045
  10. DUONEB [Concomitant]
     Dosage: 3 MG, TID, PRN
     Route: 045
  11. ERGOCALCIFEROL [Concomitant]
     Dosage: 5000 UNITS PER WEEK
     Route: 048
  12. FERROUS SULFATE [Concomitant]
     Dosage: 325 MG, QD
     Route: 048
  13. FLONASE [Concomitant]
     Dosage: 1-2 SPRAYS QD
     Route: 045
  14. LORAZEPAM [Concomitant]
     Dosage: .5 MG, QD PRN
     Route: 048
  15. NECON [Concomitant]
     Dosage: 0.035 MG, QD
     Route: 048
  16. NEXIUM [Concomitant]
     Dosage: 40 MG, QD
     Route: 048
  17. NOVOLOG [Concomitant]
     Indication: TYPE 1 DIABETES MELLITUS
     Dosage: PRN UP TO 75 UNITS QD
     Route: 058
  18. OMEGA 3 [Concomitant]
     Dosage: 1000 MG, BID
     Route: 048
  19. PREDNISONE [Concomitant]
     Dosage: 15 MG, BID
  20. PREDNISONE [Concomitant]
     Dosage: 15 MG, QD
     Route: 048
  21. PULMOZYME [Concomitant]
     Dosage: 2.5 MG, UNK
     Route: 045
  22. SINGULAIR [Concomitant]
     Dosage: 10 MG, QD
     Route: 048
  23. SODIUM CHLORIDE 0.9% [Concomitant]
     Indication: COUGH
     Dosage: 1 NEBULIZER Q 4-6 HRS PRN
  24. TRANEXAMIC ACID [Concomitant]
     Dosage: 650 MG, BID
     Route: 048
  25. URSODIOL [Concomitant]
     Dosage: 300 MG, UNK
     Route: 048
  26. VITAMIN B COMPLEX [Concomitant]
     Dosage: 50 MG, QD
     Route: 048
  27. VITAMIN K [Concomitant]
     Dosage: 5 MG, BID
     Route: 048
  28. ZYRTEC [Concomitant]
     Dosage: 20 MG, QD
     Route: 048

REACTIONS (2)
  - Pneumothorax [Recovered/Resolved]
  - Infective pulmonary exacerbation of cystic fibrosis [Recovered/Resolved]
